FAERS Safety Report 10693753 (Version 1)
Quarter: 2015Q1

REPORT INFORMATION
  Report Type: Report from Study
  Country: US (occurrence: US)
  Receive Date: 20150106
  Receipt Date: 20150106
  Transmission Date: 20150721
  Serious: Yes (Hospitalization)
  Sender: FDA-Public Use
  Company Number: US-CELGENE-USA-2014126105

PATIENT
  Age: 62 Year
  Sex: Male
  Weight: 73 kg

DRUGS (8)
  1. REVLIMID [Suspect]
     Active Substance: LENALIDOMIDE
     Indication: MANTLE CELL LYMPHOMA
     Route: 048
     Dates: start: 20130729
  2. BENDAMUSTINE [Suspect]
     Active Substance: BENDAMUSTINE
     Indication: MANTLE CELL LYMPHOMA
     Route: 065
     Dates: start: 20130729
  3. RITUXIMAB [Suspect]
     Active Substance: RITUXIMAB
     Route: 065
     Dates: start: 20141119
  4. BENDAMUSTINE [Suspect]
     Active Substance: BENDAMUSTINE
     Route: 065
     Dates: start: 20141119
  5. REVLIMID [Suspect]
     Active Substance: LENALIDOMIDE
     Dosage: TOTAL DOSE ADMINISTERED 105MG
     Route: 048
     Dates: start: 20141119, end: 20141209
  6. BORTEZOMIB [Suspect]
     Active Substance: BORTEZOMIB
     Indication: MANTLE CELL LYMPHOMA
     Route: 065
     Dates: start: 20130729
  7. BORTEZOMIB [Suspect]
     Active Substance: BORTEZOMIB
     Route: 065
     Dates: start: 20141119
  8. RITUXIMAB [Suspect]
     Active Substance: RITUXIMAB
     Indication: MANTLE CELL LYMPHOMA
     Route: 065
     Dates: start: 20130729

REACTIONS (1)
  - Second primary malignancy [Recovered/Resolved]

NARRATIVE: CASE EVENT DATE: 20141208
